FAERS Safety Report 8417116 (Version 3)
Quarter: 2016Q2

REPORT INFORMATION
  Report Type: Report from Study
  Country: CN (occurrence: CN)
  Receive Date: 20120220
  Receipt Date: 20160505
  Transmission Date: 20160815
  Serious: Yes (Death, Hospitalization)
  Sender: FDA-Public Use
  Company Number: PHHO2012CN000826

PATIENT
  Age: 69 Year
  Sex: Male
  Weight: 57 kg

DRUGS (7)
  1. ENALAPRIL [Suspect]
     Active Substance: ENALAPRIL
     Dosage: 10 MG, BID
     Route: 048
     Dates: start: 20110516
  2. ALISKIREN [Suspect]
     Active Substance: ALISKIREN
     Dosage: DOSE REDUCED
     Route: 048
     Dates: start: 20110526
  3. ENALAPRIL [Suspect]
     Active Substance: ENALAPRIL
     Indication: CARDIAC FAILURE
     Dosage: 10 MG, BID
     Route: 048
     Dates: start: 20100317, end: 20110119
  4. ALISKIREN [Suspect]
     Active Substance: ALISKIREN
     Dosage: 300 MG, UNK
     Route: 048
     Dates: start: 20110516
  5. CILOSTAZOL. [Suspect]
     Active Substance: CILOSTAZOL
     Indication: PRODUCT USED FOR UNKNOWN INDICATION
     Route: 065
  6. ALISKIREN [Suspect]
     Active Substance: ALISKIREN
     Indication: CARDIAC FAILURE
     Dosage: 300 MG, UNK
     Route: 048
     Dates: start: 20100317, end: 20110119
  7. ENALAPRIL [Suspect]
     Active Substance: ENALAPRIL
     Dosage: DOSE REDUCED
     Route: 048
     Dates: start: 20110526

REACTIONS (4)
  - Acute myocardial infarction [Fatal]
  - Blood creatinine increased [Fatal]
  - Cardiac failure [Recovered/Resolved]
  - Upper gastrointestinal haemorrhage [Fatal]

NARRATIVE: CASE EVENT DATE: 20111226
